FAERS Safety Report 7366684-3 (Version None)
Quarter: 2011Q1

REPORT INFORMATION
  Report Type: 
  Country: None (occurrence: None)
  Receive Date: 20110317
  Receipt Date: 20110317
  Transmission Date: 20110831
  Serious: Yes (Other)
  Sender: FDA-Public Use
  Company Number: None

PATIENT
  Age: 78 Year
  Sex: Female
  Weight: 53.0709 kg

DRUGS (1)
  1. RECLAST [Suspect]
     Dosage: OVER 30 MINUTES IV
     Route: 042
     Dates: start: 20110315, end: 20110315

REACTIONS (4)
  - VOMITING [None]
  - PYREXIA [None]
  - DISORIENTATION [None]
  - CHILLS [None]
